FAERS Safety Report 9734701 (Version 2)
Quarter: 2013Q4

REPORT INFORMATION
  Report Type: Spontaneous
  Country: US (occurrence: US)
  Receive Date: 20131206
  Receipt Date: 20131220
  Transmission Date: 20140711
  Serious: Yes (Hospitalization)
  Sender: FDA-Public Use
  Company Number: US-RANBAXY-2013US-75784

PATIENT
  Age: 45 Year
  Sex: Female

DRUGS (1)
  1. AMOXICILLIN /CLAVULANATE [Suspect]
     Indication: ANTIBIOTIC THERAPY
     Dosage: 875 MG, BID
     Route: 048

REACTIONS (1)
  - Drug-induced liver injury [Recovering/Resolving]
